FAERS Safety Report 9254412 (Version 1)
Quarter: 2013Q2

REPORT INFORMATION
  Report Type: Spontaneous
  Country: JP (occurrence: None)
  Receive Date: 20130419
  Receipt Date: 20130419
  Transmission Date: 20140414
  Serious: Yes (Death, Hospitalization)
  Sender: FDA-Public Use
  Company Number: 2013-001145

PATIENT
  Age: 83 Year
  Sex: Female

DRUGS (2)
  1. ACTONEL [Suspect]
     Indication: BACK PAIN
     Route: 048
     Dates: start: 20120910, end: 20120922
  2. LYRICA (PREGABALIN) [Suspect]
     Indication: BACK PAIN
     Dates: start: 20120910, end: 20120922

REACTIONS (11)
  - Interstitial lung disease [None]
  - Weight increased [None]
  - Bronchiectasis [None]
  - Dyspnoea [None]
  - White blood cell count increased [None]
  - C-reactive protein increased [None]
  - Chest X-ray abnormal [None]
  - Oxygen saturation decreased [None]
  - Laboratory test abnormal [None]
  - Computerised tomogram abnormal [None]
  - Pneumonia [None]
